FAERS Safety Report 7954805-0 (Version None)
Quarter: 2011Q4

REPORT INFORMATION
  Report Type: 
  Country: None (occurrence: None)
  Receive Date: 20111202
  Receipt Date: 20111118
  Transmission Date: 20120403
  Serious: Yes (Hospitalization)
  Sender: FDA-Public Use
  Company Number: US-ROCHE-1015281

PATIENT
  Sex: Male

DRUGS (9)
  1. ATIVAN [Concomitant]
     Indication: HEADACHE
     Route: 030
     Dates: start: 20010101
  2. DEMEROL [Concomitant]
     Indication: HEADACHE
     Route: 030
     Dates: start: 20010101
  3. NORCO [Concomitant]
     Indication: CHEST PAIN
     Dosage: 7.5MG/325 MG
     Route: 048
     Dates: start: 20111106
  4. PEGINTERFERON ALFA-2A [Suspect]
     Indication: HEPATITIS C
     Dosage: 180 MCG, 180 MCG/0.5ML
     Route: 058
     Dates: start: 20111021
  5. BLINDED BI 201335 (HCV PROTEASE INHIBITOR) [Suspect]
     Indication: HEPATITIS C
     Dosage: FORM KAW
     Route: 048
     Dates: start: 20111021
  6. COPEGUS [Suspect]
     Indication: HEPATITIS C
     Route: 048
     Dates: start: 20111021
  7. PHENERGAN [Concomitant]
     Indication: HEADACHE
     Route: 030
     Dates: start: 20010101
  8. ACETAMINOPHEN [Concomitant]
     Indication: BACK PAIN
     Route: 048
     Dates: start: 20111030
  9. SUN BATH PROTECTIVE TANNING LOTION [Concomitant]
     Indication: PROPHYLAXIS
     Dosage: UVISTAT LIPSCREEN, ROUTE TO
     Dates: start: 20111021

REACTIONS (6)
  - HYPONATRAEMIA [None]
  - DIARRHOEA [None]
  - MALAISE [None]
  - HYPOKALAEMIA [None]
  - HYPOCALCAEMIA [None]
  - THROMBOCYTOPENIA [None]
